FAERS Safety Report 4705612-3 (Version None)
Quarter: 2005Q3

REPORT INFORMATION
  Report Type: 
  Country: None (occurrence: None)
  Receive Date: 20050701
  Receipt Date: 20050621
  Transmission Date: 20060218
  Serious: Yes (Other)
  Sender: FDA-Public Use
  Company Number: IT-BOEHRINGER INGELHEIM PHARMACEUTICALS, INC.-2005-DE-02366GD

PATIENT

DRUGS (6)
  1. NEVIRAPINE [Suspect]
     Indication: HIV INFECTION
  2. NEVIRAPINE [Suspect]
     Indication: ACQUIRED IMMUNODEFICIENCY SYNDROME
  3. 3TC [Suspect]
     Indication: HIV INFECTION
  4. 3TC [Suspect]
     Indication: ACQUIRED IMMUNODEFICIENCY SYNDROME
  5. AZT [Suspect]
     Indication: HIV INFECTION
  6. AZT [Suspect]
     Indication: ACQUIRED IMMUNODEFICIENCY SYNDROME

REACTIONS (1)
  - DRUG INEFFECTIVE [None]
